FAERS Safety Report 4399351-9 (Version None)
Quarter: 2004Q3

REPORT INFORMATION
  Report Type: 
  Country: None (occurrence: None)
  Receive Date: 20040716
  Receipt Date: 20030924
  Transmission Date: 20050211
  Serious: Yes (Hospitalization, Other)
  Sender: FDA-Public Use
  Company Number: PL-BRISTOL-MYERS SQUIBB COMPANY-12392171

PATIENT
  Age: 55 Year
  Sex: Male

DRUGS (12)
  1. CISPLATIN [Suspect]
     Indication: NON-SMALL CELL LUNG CANCER
     Dosage: 3RD CYCLE HELD UNTIL 20JUN03
     Route: 042
     Dates: start: 20030425, end: 20030711
  2. PACLITAXEL [Suspect]
     Indication: NON-SMALL CELL LUNG CANCER
     Dosage: 3RD CYCLE HELD UNTIL 20JUN03
     Route: 042
     Dates: start: 20030425, end: 20030711
  3. DEXAMETHASONE [Suspect]
     Indication: BRAIN NEOPLASM
     Dates: start: 20030604, end: 20030801
  4. ASPIRIN [Concomitant]
     Indication: MYOCARDIAL ISCHAEMIA
     Route: 048
     Dates: start: 20000101
  5. BISOPROLOL FUMARATE [Concomitant]
     Indication: MYOCARDIAL ISCHAEMIA
     Route: 048
     Dates: start: 20000101
  6. ISOSORBIDE MONONITRATE [Concomitant]
     Indication: MYOCARDIAL ISCHAEMIA
     Route: 048
     Dates: start: 20000101
  7. PENTOXIFYLLINE [Concomitant]
     Indication: ATHEROSCLEROSIS OBLITERANS
     Route: 048
     Dates: start: 20000101
  8. SIMVASTATIN [Concomitant]
     Indication: HYPERCHOLESTEROLAEMIA
     Route: 048
     Dates: start: 20000101
  9. RANITIDINE [Concomitant]
     Dates: start: 20030516
  10. FUROSEMIDE [Concomitant]
     Route: 048
     Dates: start: 20030703
  11. POTASSIUM [Concomitant]
     Indication: OEDEMA PERIPHERAL
     Dates: start: 20030703
  12. GLICLAZIDE [Concomitant]
     Indication: DIABETES MELLITUS
     Route: 048
     Dates: start: 20030712, end: 20030819

REACTIONS (11)
  - ANAEMIA [None]
  - CAROTID ARTERY STENOSIS [None]
  - CEREBRAL ISCHAEMIA [None]
  - DIABETES MELLITUS [None]
  - NEUROPATHY [None]
  - OEDEMA PERIPHERAL [None]
  - PARESIS [None]
  - PLEURISY [None]
  - PNEUMONIA [None]
  - POLYNEUROPATHY [None]
  - PYOTHORAX [None]
